FAERS Safety Report 23245958 (Version 1)
Quarter: 2023Q4

REPORT INFORMATION
  Report Type: Spontaneous
  Country: US (occurrence: US)
  Receive Date: 20231130
  Receipt Date: 20231130
  Transmission Date: 20240110
  Serious: Yes (Hospitalization, Other)
  Sender: FDA-Public Use
  Company Number: US-SPECGX-T202302275

PATIENT
  Age: 76 Year
  Sex: Male

DRUGS (3)
  1. METHADONE [Suspect]
     Active Substance: METHADONE HYDROCHLORIDE
     Indication: Drug use disorder
     Dosage: 80 MILLIGRAM, QD
     Route: 065
  2. METHADONE [Suspect]
     Active Substance: METHADONE HYDROCHLORIDE
     Dosage: 60 MILLIGRAM, QD
     Route: 065
  3. VALPROATE [Suspect]
     Active Substance: VALPROIC ACID
     Indication: Seizure
     Dosage: UNK
     Route: 065

REACTIONS (8)
  - Metabolic encephalopathy [Unknown]
  - Pneumonia [Unknown]
  - Seizure [Unknown]
  - Bradycardia [Unknown]
  - Hypoglycaemia [Unknown]
  - Cardiac pacemaker insertion [Unknown]
  - Pancreatic atrophy [Unknown]
  - Hyperinsulinism [Unknown]
